FAERS Safety Report 19827091 (Version 1)
Quarter: 2021Q3

REPORT INFORMATION
  Report Type: Spontaneous
  Country: US (occurrence: US)
  Receive Date: 20210914
  Receipt Date: 20210914
  Transmission Date: 20211014
  Serious: No
  Sender: FDA-Public Use
  Company Number: US-ASTRAZENECA-2021A703792

PATIENT
  Sex: Female
  Weight: 83.9 kg

DRUGS (13)
  1. ATORVASTATIN [Concomitant]
     Active Substance: ATORVASTATIN
  2. TORSEMIDE. [Concomitant]
     Active Substance: TORSEMIDE
  3. SYNTHROID [Concomitant]
     Active Substance: LEVOTHYROXINE SODIUM
  4. TENORMIN [Concomitant]
     Active Substance: ATENOLOL
     Indication: CARDIAC FAILURE
  5. IRON [Concomitant]
     Active Substance: IRON
  6. BYDUREON [Concomitant]
     Active Substance: EXENATIDE
  7. MAGNESIUM [Concomitant]
     Active Substance: MAGNESIUM
  8. BYDUREON BCISE [Suspect]
     Active Substance: EXENATIDE
     Indication: TYPE 2 DIABETES MELLITUS
     Route: 058
  9. MULTIVITAMINS [Concomitant]
     Active Substance: VITAMINS
  10. LISINOPRIL. [Concomitant]
     Active Substance: LISINOPRIL
     Indication: HYPERTENSION
  11. SPIRONALACTONE [Concomitant]
     Active Substance: SPIRONOLACTONE
  12. EFFEXOR [Concomitant]
     Active Substance: VENLAFAXINE HYDROCHLORIDE
  13. OTC MEDICATION [Concomitant]
     Active Substance: UNSPECIFIED INGREDIENT

REACTIONS (5)
  - Injection site extravasation [Unknown]
  - Injection site haemorrhage [Unknown]
  - Incorrect dose administered by device [Unknown]
  - Intentional device use issue [Not Recovered/Not Resolved]
  - Device leakage [Unknown]
